FAERS Safety Report 15887450 (Version 1)
Quarter: 2019Q1

REPORT INFORMATION
  Report Type: Spontaneous
  Country: CA (occurrence: CA)
  Receive Date: 20190130
  Receipt Date: 20190130
  Transmission Date: 20190417
  Serious: Yes (Other)
  Sender: FDA-Public Use
  Company Number: CA-ASTRAZENECA-2019SE16356

PATIENT
  Age: 61 Year
  Sex: Female

DRUGS (11)
  1. PENTASA [Concomitant]
     Active Substance: MESALAMINE
  2. IMURAN [Concomitant]
     Active Substance: AZATHIOPRINE
  3. INFLIXIMAB [Concomitant]
     Active Substance: INFLIXIMAB
     Indication: CROHN^S DISEASE
     Dosage: 300 MG, EVERY SIX WEEKS
     Route: 042
     Dates: start: 20171122, end: 20180313
  4. INFLIXIMAB [Concomitant]
     Active Substance: INFLIXIMAB
     Indication: CROHN^S DISEASE
     Route: 042
     Dates: start: 20171122, end: 20180313
  5. INFLIXIMAB [Concomitant]
     Active Substance: INFLIXIMAB
     Indication: CROHN^S DISEASE
     Dosage: 295 MG/Q 0, 2, 6 WEEKS, THEN EVERY 8 WEEKS
     Route: 042
     Dates: start: 20171012, end: 20171025
  6. SOLU-MEDROL [Concomitant]
     Active Substance: METHYLPREDNISOLONE SODIUM SUCCINATE
     Route: 042
     Dates: start: 200009
  7. INFLIXIMAB [Concomitant]
     Active Substance: INFLIXIMAB
     Indication: CROHN^S DISEASE
     Route: 042
     Dates: start: 20180412
  8. LOSEC [Suspect]
     Active Substance: OMEPRAZOLE
     Route: 048
  9. CIPRO [Concomitant]
     Active Substance: CIPROFLOXACIN HYDROCHLORIDE
     Indication: ABSCESS
     Dosage: UNKNOWN DOSE FOR 21 DAYS
     Route: 065
     Dates: start: 20180820, end: 20180909
  10. SYNTHROID [Concomitant]
     Active Substance: LEVOTHYROXINE SODIUM
     Indication: HYPOTHYROIDISM
     Route: 065
     Dates: start: 2012
  11. TEVA-RISEDRONATE [Concomitant]
     Active Substance: RISEDRONATE SODIUM
     Indication: BONE DENSITY DECREASED
     Route: 065

REACTIONS (7)
  - Diarrhoea [Unknown]
  - Drug ineffective [Unknown]
  - Vascular pseudoaneurysm [Unknown]
  - Renal impairment [Unknown]
  - Subcutaneous abscess [Unknown]
  - Hyperplastic cholecystopathy [Unknown]
  - Abdominal lymphadenopathy [Unknown]

NARRATIVE: CASE EVENT DATE: 20180801
